FAERS Safety Report 5891373-1 (Version None)
Quarter: 2008Q3

REPORT INFORMATION
  Report Type: 
  Country: None (occurrence: None)
  Receive Date: 20080922
  Receipt Date: 20080915
  Transmission Date: 20090109
  Serious: No
  Sender: FDA-Public Use
  Company Number: GB-EISAI MEDICAL RESEARCH-E2090-00543-SPO-GB

PATIENT
  Age: 45 Year
  Sex: Female

DRUGS (3)
  1. ZONEGRAN [Suspect]
     Indication: COMPLEX PARTIAL SEIZURES
     Route: 048
     Dates: start: 20050801
  2. VALPROATE SODIUM [Concomitant]
     Route: 048
  3. LAMOTRIGINE [Concomitant]
     Route: 048

REACTIONS (2)
  - GAIT DISTURBANCE [None]
  - POSTURE ABNORMAL [None]
